APPROVED DRUG PRODUCT: BRETYLIUM TOSYLATE IN DEXTROSE 5% IN PLASTIC CONTAINER
Active Ingredient: BRETYLIUM TOSYLATE
Strength: 200MG/100ML
Dosage Form/Route: INJECTABLE;INJECTION
Application: N019008 | Product #002
Applicant: HOSPIRA INC
Approved: Apr 29, 1986 | RLD: No | RS: No | Type: DISCN